FAERS Safety Report 20564391 (Version 3)
Quarter: 2022Q3

REPORT INFORMATION
  Report Type: Spontaneous
  Country: US (occurrence: US)
  Receive Date: 20220308
  Receipt Date: 20220718
  Transmission Date: 20221026
  Serious: No
  Sender: FDA-Public Use
  Company Number: US-ELI_LILLY_AND_COMPANY-US202203000637

PATIENT
  Age: 61 Year
  Sex: Female

DRUGS (11)
  1. HUMALOG [Suspect]
     Active Substance: INSULIN LISPRO
     Indication: Type 1 diabetes mellitus
     Dosage: UNK UNK, UNKNOWN
     Route: 058
  2. HUMALOG [Suspect]
     Active Substance: INSULIN LISPRO
     Dosage: UNK UNK, UNKNOWN
     Route: 058
  3. LYUMJEV [Suspect]
     Active Substance: INSULIN LISPRO-AABC
     Indication: Type 1 diabetes mellitus
     Dosage: UNK UNK, UNKNOWN
     Route: 065
     Dates: start: 202203, end: 20220623
  4. SYNTHROID [Concomitant]
     Active Substance: LEVOTHYROXINE SODIUM
     Indication: Thyroid disorder
     Dosage: UNK UNK, UNKNOWN
     Route: 065
  5. APIDRA [Concomitant]
     Active Substance: INSULIN GLULISINE
     Indication: Product used for unknown indication
  6. MOLYBDENUM [Concomitant]
     Active Substance: MOLYBDENUM
     Indication: Product used for unknown indication
  7. TYLENOL [Concomitant]
     Active Substance: ACETAMINOPHEN
     Indication: Arthritis
  8. MUCINEX [Concomitant]
     Active Substance: GUAIFENESIN
     Indication: Product used for unknown indication
  9. TOUJEO [Concomitant]
     Active Substance: INSULIN GLARGINE
  10. CEFIXIME [Concomitant]
     Active Substance: CEFIXIME
     Indication: Product used for unknown indication
  11. MAGNESIUM [Concomitant]
     Active Substance: MAGNESIUM
     Indication: Product used for unknown indication

REACTIONS (24)
  - Cognitive disorder [Unknown]
  - Blood glucose abnormal [Recovered/Resolved]
  - Thyroid disorder [Unknown]
  - Hypersensitivity [Unknown]
  - Mycotic allergy [Unknown]
  - Eye pain [Unknown]
  - Fibromyalgia [Unknown]
  - Muscle tightness [Unknown]
  - Disorientation [Unknown]
  - Dyspepsia [Unknown]
  - Abulia [Unknown]
  - Blood glucose increased [Unknown]
  - Delusional perception [Unknown]
  - Vision blurred [Unknown]
  - Mental impairment [Unknown]
  - Reading disorder [Unknown]
  - Injection site mass [Recovered/Resolved]
  - Infusion site mass [Unknown]
  - Time perception altered [Unknown]
  - Autoimmune thyroiditis [Unknown]
  - Head discomfort [Unknown]
  - Headache [Unknown]
  - Infusion site bruising [Unknown]
  - Injection site reaction [Recovered/Resolved]

NARRATIVE: CASE EVENT DATE: 20220301
